FAERS Safety Report 17179204 (Version 1)
Quarter: 2019Q4

REPORT INFORMATION
  Report Type: Spontaneous
  Country: RO (occurrence: RO)
  Receive Date: 20191219
  Receipt Date: 20191219
  Transmission Date: 20200122
  Serious: Yes (Death, Hospitalization)
  Sender: FDA-Public Use
  Company Number: RO-AMGEN-ROUNI2019208119

PATIENT
  Age: 64 Year
  Sex: Female
  Weight: 65 kg

DRUGS (1)
  1. TRASTUZUMAB. [Suspect]
     Active Substance: TRASTUZUMAB
     Indication: BREAST CANCER
     Dosage: 600 MILLIGRAM
     Route: 065

REACTIONS (2)
  - Malaise [Fatal]
  - Lung disorder [Fatal]
